FAERS Safety Report 8849308 (Version 1)
Quarter: 2012Q4

REPORT INFORMATION
  Report Type: Spontaneous
  Country: US (occurrence: None)
  Receive Date: 20121017
  Receipt Date: 20121017
  Transmission Date: 20130627
  Serious: Yes (Hospitalization, Disabling, Other)
  Sender: FDA-Public Use
  Company Number: None

PATIENT
  Age: 46 Year
  Sex: Female
  Weight: 58.51 kg

DRUGS (2)
  1. LUPRON DEPOT 3.75 MG [Suspect]
     Indication: ENDOMETRIOSIS
     Dates: start: 20101016, end: 20101117
  2. NOREPINEPHRINE [Suspect]
     Indication: ADVERSE EVENT
     Dates: start: 20101105, end: 20101130

REACTIONS (9)
  - Catheterisation cardiac abnormal [None]
  - Blood cholesterol increased [None]
  - Eye laser surgery [None]
  - Nervous system disorder [None]
  - Migraine [None]
  - Memory impairment [None]
  - Emotional disorder [None]
  - Suicidal ideation [None]
  - Pain [None]
